FAERS Safety Report 8887315 (Version 1)
Quarter: 2012Q4

REPORT INFORMATION
  Report Type: 
  Country: FR (occurrence: FR)
  Receive Date: 20121101
  Receipt Date: 20121101
  Transmission Date: 20130627
  Serious: Yes (Other)
  Sender: FDA-Public Use
  Company Number: FR-PFIZER INC-2012272313

PATIENT
  Age: 38 Year
  Sex: Female

DRUGS (1)
  1. XANAX [Suspect]
     Dosage: 3 to 4 tablets in one intake

REACTIONS (2)
  - Intentional overdose [Unknown]
  - Suicide attempt [Unknown]
